FAERS Safety Report 7297861-8 (Version None)
Quarter: 2011Q1

REPORT INFORMATION
  Report Type: 
  Country: None (occurrence: None)
  Receive Date: 20110217
  Receipt Date: 20101112
  Transmission Date: 20110831
  Serious: No
  Sender: FDA-Public Use
  Company Number: US-KINGPHARMUSA00001-K201001386

PATIENT
  Age: 73 Year
  Sex: Male
  Weight: 84.807 kg

DRUGS (5)
  1. FLECTOR [Suspect]
     Indication: BACK PAIN
     Dosage: 1 PATCH, QD
     Route: 061
     Dates: start: 20100101, end: 20100101
  2. LIPITOR [Concomitant]
  3. COREG [Concomitant]
  4. FLECTOR [Suspect]
     Dosage: 1 PATCH, QD
     Route: 061
     Dates: start: 20100101
  5. AZOR [Concomitant]
     Dosage: 10/20

REACTIONS (1)
  - APPLICATION SITE PRURITUS [None]
